FAERS Safety Report 18847695 (Version 5)
Quarter: 2022Q1

REPORT INFORMATION
  Report Type: Report from Study
  Country: US (occurrence: US)
  Receive Date: 20210204
  Receipt Date: 20220216
  Transmission Date: 20220423
  Serious: Yes (Hospitalization, Other)
  Sender: FDA-Public Use
  Company Number: US-SHIRE-US201938724AA

PATIENT
  Age: 75 Year
  Sex: Female
  Weight: 49 kg

DRUGS (36)
  1. HUMAN IMMUNOGLOBULIN G [Suspect]
     Active Substance: HUMAN IMMUNOGLOBULIN G
     Indication: Immunodeficiency common variable
     Dosage: 20 GRAM, Q2WEEKS
     Route: 065
  2. HUMAN IMMUNOGLOBULIN G [Suspect]
     Active Substance: HUMAN IMMUNOGLOBULIN G
     Dosage: 20 GRAM, Q2WEEKS
     Route: 058
     Dates: start: 20180209
  3. HYQVIA [Suspect]
     Active Substance: HUMAN IMMUNOGLOBULIN G\HYALURONIDASE RECOMBINANT HUMAN
     Indication: Primary immunodeficiency syndrome
     Dosage: 20 GRAM, Q2WEEKS
     Route: 065
  4. ACETAMINOPHEN [Concomitant]
     Active Substance: ACETAMINOPHEN
  5. DIPHENHYDRAMINE [Concomitant]
     Active Substance: DIPHENHYDRAMINE
  6. LIDOCAINE HYDROCHLORIDE [Concomitant]
     Active Substance: LIDOCAINE HYDROCHLORIDE
  7. EPINEPHRINE [Concomitant]
     Active Substance: EPINEPHRINE
  8. AUGMENTIN [Concomitant]
     Active Substance: AMOXICILLIN\CLAVULANATE POTASSIUM
  9. LYRICA [Concomitant]
     Active Substance: PREGABALIN
  10. DOXYCYCLINE [Concomitant]
     Active Substance: DOXYCYCLINE
  11. ZYRTEC [Concomitant]
     Active Substance: CETIRIZINE HYDROCHLORIDE
  12. ERYTHROMYCIN [Concomitant]
     Active Substance: ERYTHROMYCIN
  13. LOTEMAX [Concomitant]
     Active Substance: LOTEPREDNOL ETABONATE
  14. GABAPENTIN [Concomitant]
     Active Substance: GABAPENTIN
  15. NEXIUM I.V. [Concomitant]
     Active Substance: ESOMEPRAZOLE SODIUM
  16. AMITRIPTYLINE [Concomitant]
     Active Substance: AMITRIPTYLINE
  17. EVISTA [Concomitant]
     Active Substance: RALOXIFENE HYDROCHLORIDE
  18. CALCITONIN SALMON [Concomitant]
     Active Substance: CALCITONIN SALMON
  19. SINGULAIR [Concomitant]
     Active Substance: MONTELUKAST SODIUM
  20. OMEPRAZOLE [Concomitant]
     Active Substance: OMEPRAZOLE
  21. PROVENTIL HFA [Concomitant]
     Active Substance: ALBUTEROL SULFATE
  22. ESTRADIOL [Concomitant]
     Active Substance: ESTRADIOL
  23. MOMETASONE FUROATE [Concomitant]
     Active Substance: MOMETASONE FUROATE
  24. DESOXIMETASONE [Concomitant]
     Active Substance: DESOXIMETASONE
  25. VITAMINS [Concomitant]
     Active Substance: VITAMINS
  26. BENZONATATE [Concomitant]
     Active Substance: BENZONATATE
  27. TOPIRAMATE [Concomitant]
     Active Substance: TOPIRAMATE
  28. CALCIUM [Concomitant]
     Active Substance: CALCIUM
  29. PROTOPIC [Concomitant]
     Active Substance: TACROLIMUS
  30. VITAMIN D2 [Concomitant]
     Active Substance: ERGOCALCIFEROL
  31. ASPIRIN\BUTALBITAL\CAFFEINE\PHENACETIN [Concomitant]
     Active Substance: ASPIRIN\BUTALBITAL\CAFFEINE\PHENACETIN
  32. CYCLOBENZAPRINE [Concomitant]
     Active Substance: CYCLOBENZAPRINE
  33. FLUTICASONE PROPIONATE [Concomitant]
     Active Substance: FLUTICASONE PROPIONATE
  34. CALCIUM CARBONATE [Concomitant]
     Active Substance: CALCIUM CARBONATE
  35. VITAMIN D [Concomitant]
     Active Substance: VITAMIN D NOS
  36. PROAIR HFA [Concomitant]
     Active Substance: ALBUTEROL SULFATE

REACTIONS (14)
  - Pelvic fracture [Recovering/Resolving]
  - Cellulitis [Recovered/Resolved]
  - Multiple fractures [Unknown]
  - Rib fracture [Recovering/Resolving]
  - Injury [Recovering/Resolving]
  - Neck pain [Not Recovered/Not Resolved]
  - Arthropathy [Recovered/Resolved]
  - Back pain [Not Recovered/Not Resolved]
  - Gastrointestinal obstruction [Recovered/Resolved]
  - Squamous cell carcinoma of skin [Recovered/Resolved]
  - Osteoporosis [Recovered/Resolved]
  - Drug eruption [Unknown]
  - Fall [Recovering/Resolving]
  - Vertebroplasty [Recovered/Resolved]

NARRATIVE: CASE EVENT DATE: 20190906
